FAERS Safety Report 12967872 (Version 1)
Quarter: 2016Q4

REPORT INFORMATION
  Report Type: Spontaneous
  Country: US (occurrence: US)
  Receive Date: 20161122
  Receipt Date: 20161122
  Transmission Date: 20170207
  Serious: Yes (Hospitalization)
  Sender: FDA-Public Use
  Company Number: None

PATIENT
  Age: 32 Year
  Sex: Male
  Weight: 79.5 kg

DRUGS (3)
  1. INVOKANA [Suspect]
     Active Substance: CANAGLIFLOZIN
     Indication: DIABETES MELLITUS
     Route: 048
  2. HUMALOG [Concomitant]
     Active Substance: INSULIN LISPRO
  3. VICTOZA [Concomitant]
     Active Substance: LIRAGLUTIDE

REACTIONS (1)
  - Diabetic ketoacidosis [None]

NARRATIVE: CASE EVENT DATE: 20160621
